FAERS Safety Report 5678592-4 (Version None)
Quarter: 2008Q1

REPORT INFORMATION
  Report Type: 
  Country: None (occurrence: None)
  Receive Date: 20080325
  Receipt Date: 20080312
  Transmission Date: 20080703
  Serious: Yes (Hospitalization)
  Sender: FDA-Public Use
  Company Number: PHHY2008JP03073

PATIENT
  Age: 34 Year
  Sex: Male

DRUGS (2)
  1. SANDOSTATIN LAR [Suspect]
     Indication: ACROMEGALY
     Dosage: 20 MG
     Route: 030
  2. SANDOSTATIN [Suspect]
     Indication: ACROMEGALY
     Dosage: 100 UG
     Route: 058

REACTIONS (2)
  - ABDOMINAL SYMPTOM [None]
  - TUMOUR EXCISION [None]
